FAERS Safety Report 5128661-2 (Version None)
Quarter: 2006Q4

REPORT INFORMATION
  Report Type: 
  Country: None (occurrence: None)
  Receive Date: 20061011
  Receipt Date: 20060922
  Transmission Date: 20070319
  Serious: Yes (Life-Threatening, Hospitalization, Other)
  Sender: FDA-Public Use
  Company Number: 2006AL002923

PATIENT
  Age: 7 Year
  Sex: Female

DRUGS (2)
  1. PROPYLTHIOURACIL [Suspect]
     Indication: BASEDOW'S DISEASE
     Dosage: 9 MG/KG; QD; PO
     Route: 048
  2. PROPRANOLOL [Concomitant]

REACTIONS (11)
  - AUTOIMMUNE HEPATITIS [None]
  - CHOLESTASIS [None]
  - ENCEPHALOPATHY [None]
  - GOITRE [None]
  - HEPATIC FAILURE [None]
  - HEPATIC NECROSIS [None]
  - HEPATIC NEOPLASM [None]
  - LIVER TRANSPLANT [None]
  - LIVER TRANSPLANT REJECTION [None]
  - SPLENOMEGALY [None]
  - SYNCOPE [None]
